FAERS Safety Report 7889308-5 (Version None)
Quarter: 2011Q4

REPORT INFORMATION
  Report Type: 
  Country: None (occurrence: None)
  Receive Date: 20111103
  Receipt Date: 20101214
  Transmission Date: 20120403
  Serious: Yes (Death, Life-Threatening, Hospitalization, Other)
  Sender: FDA-Public Use
  Company Number: US-BAYER-2010-005079

PATIENT
  Age: 78 Year
  Sex: Male
  Weight: 117 kg

DRUGS (21)
  1. CARAFATE [Concomitant]
     Indication: STOMATITIS
     Dosage: UNK
     Dates: start: 20101110
  2. NYSTATIN [Concomitant]
     Indication: GROIN INFECTION
     Dosage: UNK
     Dates: start: 20101020
  3. ZOCOR [Concomitant]
     Indication: HYPERCHOLESTEROLAEMIA
     Dosage: UNK
     Dates: start: 20070729
  4. ACETYLSALICYLIC ACID SRT [Suspect]
     Indication: ISCHAEMIC HEART DISEASE PROPHYLAXIS
     Dosage: 81 MG, QD
     Dates: start: 20100830
  5. CHLORTHALIDONE [Concomitant]
     Indication: HYPERTENSION
     Dosage: UNK
     Dates: start: 20101019
  6. MELOXICAM [Concomitant]
     Dosage: UNK
     Dates: start: 20101104
  7. SENNA [Concomitant]
     Indication: CONSTIPATION
     Dosage: UNK
     Dates: start: 20100907
  8. LOTRIMIN [Concomitant]
     Indication: GROIN INFECTION
     Dosage: UNK
     Dates: start: 20101014
  9. ACTOS [Concomitant]
     Indication: HYPERGLYCAEMIA
     Dosage: UNK
     Dates: start: 20100830
  10. AMLODIPINE BESYLATE [Concomitant]
     Dosage: UNK
     Dates: start: 20101110
  11. ACETAMINOPHEN [Concomitant]
     Indication: PAIN
     Dosage: UNK
     Dates: start: 20100907
  12. CELEBREX [Concomitant]
     Indication: ARTHRALGIA
     Dosage: UNK
     Dates: start: 20100907
  13. ANTINEOPLASTIC AGENTS [Suspect]
     Indication: METASTATIC RENAL CELL CARCINOMA
     Dosage: 3 MG, BID
     Route: 048
     Dates: start: 20100929, end: 20101110
  14. GUAIFENESIN [Concomitant]
     Indication: COUGH
     Dosage: UNK
     Dates: start: 20101014
  15. COREG [Concomitant]
     Dosage: UNK
     Dates: start: 20101104
  16. LEVOTHYROXINE SODIUM [Concomitant]
     Indication: HYPOTHYROIDISM
     Dosage: UNK
     Dates: start: 20101027
  17. SIMVASTATIN [Concomitant]
     Indication: HYPERLIPIDAEMIA
     Dosage: UNK
     Dates: start: 20100907
  18. BAZA [Concomitant]
     Indication: GROIN INFECTION
     Dosage: UNK
     Dates: start: 20101104
  19. FLOMAX [Concomitant]
     Indication: BENIGN PROSTATIC HYPERPLASIA
     Dosage: UNK
     Dates: start: 20101105
  20. AMOXICILLIN [Concomitant]
     Indication: URINARY TRACT INFECTION
     Dosage: UNK
     Dates: start: 20101029
  21. TERAZOSIN HCL [Concomitant]
     Indication: BENIGN PROSTATIC HYPERPLASIA
     Dosage: UNK
     Dates: start: 20050107

REACTIONS (10)
  - CARDIAC ARREST [None]
  - CONVULSION [None]
  - HYPOTENSION [None]
  - DYSKINESIA [None]
  - TACHYPNOEA [None]
  - DYSPNOEA [None]
  - UNRESPONSIVE TO STIMULI [None]
  - BRADYCARDIA [None]
  - EYE MOVEMENT DISORDER [None]
  - HAEMOPTYSIS [None]
